FAERS Safety Report 8105253-4 (Version None)
Quarter: 2012Q1

REPORT INFORMATION
  Report Type: 
  Country: None (occurrence: None)
  Receive Date: 20120201
  Receipt Date: 20120118
  Transmission Date: 20120608
  Serious: Yes (Other)
  Sender: FDA-Public Use
  Company Number: AU-JNJFOC-20120109290

PATIENT
  Sex: Female

DRUGS (4)
  1. PANADOL OSTEO [Concomitant]
  2. REMICADE [Suspect]
     Indication: CROHN'S DISEASE
     Dosage: DATES OF ALL DOSES: 8 WEEKLY
     Route: 042
     Dates: start: 20100101, end: 20111101
  3. IMURAN [Concomitant]
  4. MESALAMINE [Concomitant]
     Dosage: 1 SACHET TDS

REACTIONS (1)
  - SYSTEMIC LUPUS ERYTHEMATOSUS [None]
